FAERS Safety Report 24166419 (Version 1)
Quarter: 2024Q3

REPORT INFORMATION
  Report Type: Report from Study
  Country: US (occurrence: None)
  Receive Date: 20240802
  Receipt Date: 20240802
  Transmission Date: 20241016
  Serious: Yes (Congenital Anomaly, Other)
  Sender: ASTRAZENECA
  Company Number: 2023A121327

PATIENT
  Sex: Female

DRUGS (1)
  1. FASENRA [Suspect]
     Active Substance: BENRALIZUMAB
     Route: 058

REACTIONS (12)
  - Myocardial bridging [Unknown]
  - Deafness [Unknown]
  - Attention deficit hyperactivity disorder [Unknown]
  - Major depression [Unknown]
  - Anxiety [Unknown]
  - Post-traumatic epilepsy [Unknown]
  - Gastrooesophageal reflux disease [Unknown]
  - Irritable bowel syndrome [Unknown]
  - Gluten sensitivity [Unknown]
  - Lactose intolerance [Unknown]
  - Endometriosis [Unknown]
  - Temporomandibular pain and dysfunction syndrome [Unknown]
